FAERS Safety Report 19994161 (Version 1)
Quarter: 2021Q4

REPORT INFORMATION
  Report Type: Spontaneous
  Country: PL (occurrence: PL)
  Receive Date: 20211026
  Receipt Date: 20211026
  Transmission Date: 20220303
  Serious: Yes (Hospitalization, Other)
  Sender: FDA-Public Use
  Company Number: PL-LUPIN PHARMACEUTICALS INC.-2021-20527

PATIENT
  Age: 33 Year
  Sex: Female

DRUGS (1)
  1. LEVONORGESTREL [Suspect]
     Active Substance: LEVONORGESTREL
     Indication: Contraception
     Dosage: 13.5 MILLIGRAM (INTRAUTERINE DEVICE)
     Route: 015

REACTIONS (6)
  - Pregnancy with contraceptive device [Unknown]
  - Ectopic pregnancy with contraceptive device [Unknown]
  - Ectopic pregnancy [Unknown]
  - Exposure during pregnancy [Unknown]
  - Ovarian rupture [Unknown]
  - Haemorrhage [Unknown]
